FAERS Safety Report 7822342-X (Version None)
Quarter: 2011Q4

REPORT INFORMATION
  Report Type: 
  Country: None (occurrence: None)
  Receive Date: 20111018
  Receipt Date: 20101012
  Transmission Date: 20120403
  Serious: No
  Sender: FDA-Public Use
  Company Number: US-ASTRAZENECA-2010SE48074

PATIENT
  Age: 67 Year
  Sex: Female
  Weight: 66.7 kg

DRUGS (12)
  1. EVISTA [Concomitant]
  2. CITALOPRAM [Concomitant]
  3. SYMBICORT [Suspect]
     Dosage: 160/4.5 UG, TWO PUFFS BID
     Route: 055
     Dates: start: 20100827, end: 20101011
  4. LISINOPRIL [Concomitant]
     Route: 048
  5. SPIRIVA [Concomitant]
  6. CRESTOR [Concomitant]
     Route: 048
  7. ALBUTEROL [Concomitant]
  8. SYMBICORT [Suspect]
     Dosage: 80/4.5 UG, TWO PUFFS BID
     Route: 055
     Dates: start: 20101012
  9. SYMBICORT [Suspect]
     Indication: CHRONIC OBSTRUCTIVE PULMONARY DISEASE
     Dosage: 80/4.5 UG, TWO PUFFS BID
     Route: 055
  10. LEVOTHYROXINE SODIUM [Concomitant]
  11. DILTIAZEM HCL [Concomitant]
  12. HYDROCHLOROTHIAZIDE [Concomitant]

REACTIONS (1)
  - DYSPNOEA [None]
